FAERS Safety Report 9735300 (Version 1)
Quarter: 2013Q4

REPORT INFORMATION
  Report Type: Spontaneous
  Country: NO (occurrence: NO)
  Receive Date: 20131206
  Receipt Date: 20131206
  Transmission Date: 20140711
  Serious: Yes (Hospitalization)
  Sender: FDA-Public Use
  Company Number: NO-TEVA-447937ISR

PATIENT
  Age: 69 Year
  Sex: Female

DRUGS (10)
  1. METHOTREXATE [Suspect]
     Indication: RHEUMATOID ARTHRITIS
     Dosage: TREATMENT TEMPORARILY WITHDRAWN FROM 03-2013 TO 05-2013
     Route: 048
     Dates: start: 20000620
  2. ENBREL [Suspect]
     Indication: RHEUMATOID ARTHRITIS
     Dosage: TREATMENT TEMPORARILY WITHDRAWN FROM 03-2013 TO 05-2013
     Route: 058
     Dates: start: 20040616
  3. DIURAL [Concomitant]
     Route: 048
  4. FOLSYRE NAF [Concomitant]
     Indication: RHEUMATOID ARTHRITIS
     Dosage: 1 MG DAILY EXCEPT THURSDAY AND FRIDAY
     Route: 048
  5. TENORMIN [Concomitant]
     Dosage: 100 MILLIGRAM DAILY;
     Route: 048
  6. ACTIVELLE [Concomitant]
     Dosage: .5 DOSAGE FORMS DAILY;
     Route: 048
  7. CARDURAN CR [Concomitant]
     Dosage: 8 MILLIGRAM DAILY;
     Route: 048
  8. MELOXICAM [Concomitant]
     Route: 048
  9. PANODIL [Concomitant]
     Dosage: 1 G UP TO THREE TIMES DAILY
     Route: 048
  10. TRAMADOL [Concomitant]
     Dosage: 50-100 MG UP TO THREE TIMES DAILY
     Route: 048

REACTIONS (2)
  - Erysipelas [Recovered/Resolved]
  - Bursitis [Recovered/Resolved]
